FAERS Safety Report 6002117-7 (Version None)
Quarter: 2008Q4

REPORT INFORMATION
  Report Type: 
  Country: None (occurrence: None)
  Receive Date: 20081215
  Receipt Date: 20071218
  Transmission Date: 20090506
  Serious: No
  Sender: FDA-Public Use
  Company Number: US-AMGEN-KDL254323

PATIENT
  Sex: Female

DRUGS (2)
  1. ENBREL [Suspect]
     Indication: RHEUMATOID ARTHRITIS
     Route: 058
     Dates: start: 20070918
  2. METHOTREXATE [Concomitant]
     Dates: start: 19830101

REACTIONS (5)
  - ARTHRALGIA [None]
  - EYE PAIN [None]
  - HEADACHE [None]
  - OEDEMA PERIPHERAL [None]
  - WOUND SECRETION [None]
